FAERS Safety Report 22606556 (Version 1)
Quarter: 2023Q2

REPORT INFORMATION
  Report Type: Spontaneous
  Country: US (occurrence: None)
  Receive Date: 20230614
  Receipt Date: 20230614
  Transmission Date: 20230722
  Serious: Yes (Death, Life-Threatening, Hospitalization)
  Sender: FDA-Public Use
  Company Number: None

PATIENT
  Age: 76 Year
  Sex: Male
  Weight: 90.72 kg

DRUGS (1)
  1. LUPRON [Suspect]
     Active Substance: LEUPROLIDE ACETATE

REACTIONS (9)
  - Dyspnoea [None]
  - Fatigue [None]
  - Fluid retention [None]
  - Myocardial injury [None]
  - Myalgia [None]
  - Blood potassium decreased [None]
  - Injection related reaction [None]
  - Mobility decreased [None]
  - Weight increased [None]

NARRATIVE: CASE EVENT DATE: 20220910
